FAERS Safety Report 4653861-5 (Version None)
Quarter: 2005Q2

REPORT INFORMATION
  Report Type: 
  Country: None (occurrence: None)
  Receive Date: 20050504
  Receipt Date: 20050421
  Transmission Date: 20051028
  Serious: Yes (Congenital Anomaly, Other)
  Sender: FDA-Public Use
  Company Number: 310052K05USA

PATIENT

DRUGS (1)
  1. GONAL-F [Suspect]
     Indication: INFERTILITY
     Dosage: 300 IU, 2 IN 1 DAYS
     Dates: start: 20030701

REACTIONS (2)
  - HEREDITARY DISORDER [None]
  - MATERNAL DRUGS AFFECTING FOETUS [None]
